FAERS Safety Report 6203505-6 (Version None)
Quarter: 2009Q2

REPORT INFORMATION
  Report Type: 
  Country: None (occurrence: None)
  Receive Date: 20090527
  Receipt Date: 20090520
  Transmission Date: 20091009
  Serious: Yes (Other)
  Sender: FDA-Public Use
  Company Number: PHHY2009JP18597

PATIENT
  Age: 49 Year
  Sex: Male

DRUGS (5)
  1. DIOVAN [Suspect]
     Dosage: 80 MG /DAY
  2. TACROLIMUS [Concomitant]
     Dosage: 7 MG, DAILY
  3. MYCOPHENOLATE MOFETIL [Concomitant]
     Dosage: 1500 MG DAILY
  4. METHYLPREDNISOLONE [Concomitant]
     Dosage: 2 MG, PER DAY
  5. CARVEDILOL [Concomitant]
     Dosage: 20 MG/DAY

REACTIONS (8)
  - AORTIC ANEURYSM [None]
  - AORTIC DISORDER [None]
  - ARTERIAL BYPASS OPERATION [None]
  - ARTERIAL OCCLUSIVE DISEASE [None]
  - HAEMODIALYSIS [None]
  - OLIGURIA [None]
  - RENAL FAILURE ACUTE [None]
  - RENAL TRANSPLANT [None]
